FAERS Safety Report 11845607 (Version 1)
Quarter: 2015Q4

REPORT INFORMATION
  Report Type: Spontaneous
  Country: IT (occurrence: IT)
  Receive Date: 20151217
  Receipt Date: 20151217
  Transmission Date: 20160305
  Serious: Yes (Death, Hospitalization)
  Sender: FDA-Public Use
  Company Number: IT-MYLANLABS-2015M1045115

PATIENT

DRUGS (2)
  1. ALLOPURINOL. [Suspect]
     Active Substance: ALLOPURINOL
     Indication: BLOOD URIC ACID INCREASED
     Route: 065
  2. INFLIXIMAB [Suspect]
     Active Substance: INFLIXIMAB
     Indication: TOXIC EPIDERMAL NECROLYSIS
     Route: 041

REACTIONS (3)
  - Pneumonia pseudomonal [Fatal]
  - Sepsis [Fatal]
  - Toxic epidermal necrolysis [Unknown]
